FAERS Safety Report 7252179-4 (Version None)
Quarter: 2011Q1

REPORT INFORMATION
  Report Type: 
  Country: None (occurrence: None)
  Receive Date: 20110129
  Receipt Date: 20100414
  Transmission Date: 20110831
  Serious: No
  Sender: FDA-Public Use
  Company Number: US-ABBOTT-10P-163-0639203-00

PATIENT
  Sex: Female

DRUGS (7)
  1. PRILOSEC [Concomitant]
     Indication: PRODUCT USED FOR UNKNOWN INDICATION
  2. DETRAL LA [Concomitant]
     Indication: PRODUCT USED FOR UNKNOWN INDICATION
  3. ZOCOR [Concomitant]
     Indication: PRODUCT USED FOR UNKNOWN INDICATION
  4. POTASSIUM ER [Concomitant]
     Indication: PRODUCT USED FOR UNKNOWN INDICATION
  5. LIALDA [Concomitant]
     Indication: PRODUCT USED FOR UNKNOWN INDICATION
  6. HUMIRA [Suspect]
     Indication: CROHN'S DISEASE
     Route: 058
     Dates: start: 20100202
  7. TOPAMAX [Concomitant]
     Indication: PRODUCT USED FOR UNKNOWN INDICATION

REACTIONS (1)
  - ALOPECIA [None]
